FAERS Safety Report 7720493-1 (Version None)
Quarter: 2011Q3

REPORT INFORMATION
  Report Type: 
  Country: None (occurrence: None)
  Receive Date: 20110830
  Receipt Date: 20110830
  Transmission Date: 20111222
  Serious: Yes (Other)
  Sender: FDA-Public Use
  Company Number: None

PATIENT
  Age: 58 Year
  Sex: Female
  Weight: 68.0396 kg

DRUGS (1)
  1. DOXYCYCLINE [Suspect]
     Indication: LYME DISEASE
     Dosage: 2X DAILY MOUTH
     Route: 048
     Dates: start: 20110703, end: 20110717

REACTIONS (7)
  - PARAESTHESIA [None]
  - PYREXIA [None]
  - IMPAIRED HEALING [None]
  - BLISTER [None]
  - HEADACHE [None]
  - BURNING SENSATION [None]
  - WEIGHT DECREASED [None]
